FAERS Safety Report 7084699-X (Version None)
Quarter: 2010Q4

REPORT INFORMATION
  Report Type: 
  Country: None (occurrence: None)
  Receive Date: 20101104
  Receipt Date: 20101022
  Transmission Date: 20110411
  Serious: Yes (Disabling)
  Sender: FDA-Public Use
  Company Number: FR-AMGEN-QUU437500

PATIENT

DRUGS (15)
  1. ENBREL [Suspect]
     Indication: ANKYLOSING SPONDYLITIS
     Route: 058
     Dates: start: 20050201, end: 20060401
  2. ENBREL [Suspect]
     Indication: PSORIATIC ARTHROPATHY
     Route: 058
     Dates: start: 20060401, end: 20061001
  3. ENBREL [Suspect]
     Dosage: 40 MG 1 TIME EVERY 10DAYS
     Route: 058
     Dates: start: 20061011, end: 20061231
  4. ENBREL [Suspect]
     Dosage: 25 MG 1TIME EVERY 2 WEEKS
     Route: 058
     Dates: start: 20070101, end: 20070501
  5. ENBREL [Suspect]
     Route: 058
     Dates: start: 20070501, end: 20071001
  6. ENBREL [Suspect]
     Route: 058
     Dates: start: 20071001, end: 20080701
  7. ENBREL [Suspect]
     Dosage: 25 MG 1 TIME EVERY 5 WEEKS
     Route: 058
     Dates: start: 20080701, end: 20081001
  8. ENBREL [Suspect]
     Route: 058
     Dates: start: 20081027, end: 20081201
  9. ENBREL [Suspect]
     Dosage: 25 MG 1 TIME EVERY 5DAYS
     Route: 058
     Dates: start: 20081202, end: 20081223
  10. ENBREL [Suspect]
     Route: 058
     Dates: start: 20081224, end: 20090209
  11. ENBREL [Suspect]
     Dosage: FROM 25 MG EVERY 5 DAYS TO 25 MG WEEKLY
     Route: 058
     Dates: start: 20090201, end: 20090316
  12. ENBREL [Suspect]
     Dosage: FROM 25 MG TWICE WEEKLY TO 25 MG ONCE WEEKLY
     Route: 058
     Dates: start: 20090316, end: 20090901
  13. ENBREL [Suspect]
     Dosage: 50 MG, QWK
     Route: 058
     Dates: start: 20091001
  14. PNEUMO 23 [Suspect]
     Indication: IMMUNISATION
     Dosage: 1 DOSE
     Dates: start: 20090810, end: 20090810
  15. APRANAX [Concomitant]
     Dosage: 550 MG, TAKEN OCCASIONALLY
     Route: 048

REACTIONS (7)
  - ANKYLOSING SPONDYLITIS [None]
  - CONDITION AGGRAVATED [None]
  - COUGH [None]
  - DYSPHAGIA [None]
  - DYSPNOEA [None]
  - ECZEMA [None]
  - H1N1 INFLUENZA [None]
